FAERS Safety Report 8906428 (Version 1)
Quarter: 2012Q4

REPORT INFORMATION
  Report Type: Spontaneous
  Country: US (occurrence: None)
  Receive Date: 20121108
  Receipt Date: 20121108
  Transmission Date: 20130627
  Serious: Yes (Other)
  Sender: FDA-Public Use
  Company Number: 2012SA081189

PATIENT
  Age: 64 Year
  Sex: Female

DRUGS (5)
  1. ICY HOT POWER GEL [Suspect]
     Route: 061
     Dates: start: 20121030, end: 20121031
  2. INTERFERON BETA [Concomitant]
  3. ALL OTHER THERAPEUTIC PRODUCTS [Concomitant]
  4. PERCOCET [Concomitant]
  5. LIPITOR [Concomitant]

REACTIONS (1)
  - Blister [None]
